FAERS Safety Report 19958753 (Version 1)
Quarter: 2021Q4

REPORT INFORMATION
  Report Type: Spontaneous
  Country: DK (occurrence: DK)
  Receive Date: 20211015
  Receipt Date: 20211015
  Transmission Date: 20220303
  Serious: Yes (Death, Life-Threatening, Hospitalization)
  Sender: FDA-Public Use
  Company Number: None

PATIENT
  Age: 84 Year
  Sex: Male
  Weight: 84 kg

DRUGS (15)
  1. ALBUTEROL SULFATE [Concomitant]
     Active Substance: ALBUTEROL SULFATE
     Indication: Bronchospasm
     Dosage: 1 ADMINISTRATION AS NECESSARY, MAX 6 TIMES DAILY. STRENGTH: 200 MCG/DOSE.
     Route: 055
     Dates: start: 20170505
  2. LINAGLIPTIN [Concomitant]
     Active Substance: LINAGLIPTIN
     Indication: Type 2 diabetes mellitus
     Dosage: 5 MG, QD
     Route: 048
     Dates: start: 20200617
  3. PRAMIPEXOL ^1A FARMA^ [Concomitant]
     Indication: Restless legs syndrome
     Dosage: 0.09 MG, QD
     Route: 048
     Dates: start: 20201130
  4. RAMIPRIL ^HEXAL^ [Concomitant]
     Indication: Hypertension
     Dosage: 1.25 MG, QD
     Route: 048
     Dates: start: 20210628
  5. SYMBICORT [Concomitant]
     Active Substance: BUDESONIDE\FORMOTEROL FUMARATE DIHYDRATE
     Indication: Chronic obstructive pulmonary disease
     Dosage: 2 DF/DAY (4.5+160 MCG/DOSE)
     Route: 055
     Dates: start: 20200507
  6. METOPROLOL SUCCINATE [Concomitant]
     Active Substance: METOPROLOL SUCCINATE
     Indication: Heart rate irregular
     Dosage: 100 MG, QD
     Route: 048
     Dates: start: 20161026
  7. DYMISTA [Concomitant]
     Active Substance: AZELASTINE HYDROCHLORIDE\FLUTICASONE PROPIONATE
     Indication: Rhinitis allergic
     Dosage: 2 DF/DAY (ONE ADMINISTRATION IN EACH NOSTIL, MORNING AND EVENING. STRENGTH: 137+50 MCG/DOSE)
     Route: 045
     Dates: start: 20190902
  8. FORMOTEROL [Concomitant]
     Active Substance: FORMOTEROL
     Indication: Chronic obstructive pulmonary disease
     Dosage: 24 ?G, QD (12 MCG/DOSE)
     Route: 055
     Dates: start: 20180913
  9. OZEMPIC [Suspect]
     Active Substance: SEMAGLUTIDE
     Indication: Type 2 diabetes mellitus
     Dosage: 0.25 MG, QW
     Route: 058
     Dates: start: 20210811, end: 20210906
  10. ATORVASTATIN ^XIROMED^ [Concomitant]
     Indication: Hypercholesterolaemia
     Dosage: 40 MG, QD
     Route: 048
     Dates: start: 20170918
  11. DAPAGLIFLOZIN [Concomitant]
     Active Substance: DAPAGLIFLOZIN
     Indication: Type 2 diabetes mellitus
     Dosage: 10 MG, QD
     Route: 048
     Dates: start: 20200316
  12. ELIQUIS [Concomitant]
     Active Substance: APIXABAN
     Indication: Thrombosis prophylaxis
     Dosage: 10 MG, QD (STRENGTH: 5 MG)
     Route: 048
     Dates: start: 20161011
  13. MELATONIN [Concomitant]
     Active Substance: MELATONIN
     Indication: Insomnia
     Dosage: 4-6 MG 1-2 HOURS BEFORE BEDTIME. STRENGTH: 2 MG
     Route: 048
     Dates: start: 20200501, end: 20210901
  14. FURIX [Concomitant]
     Indication: Diuretic therapy
     Dosage: 1 TABLET IN THE MORNING AND 0.5 TABLET IN THE EVENING. STRENGTH: 250 MG.
     Route: 048
     Dates: start: 20200507
  15. SPIRON [Concomitant]
     Indication: Diuretic therapy
     Dosage: 25 MG, QD
     Route: 048
     Dates: start: 20200117

REACTIONS (10)
  - Dehydration [Fatal]
  - Hypovolaemia [Fatal]
  - Renal failure [Fatal]
  - Hypotension [Fatal]
  - Pyrexia [Fatal]
  - Atrial fibrillation [Fatal]
  - Mucosal haemorrhage [Fatal]
  - Coagulopathy [Fatal]
  - Oliguria [Fatal]
  - Diarrhoea [Fatal]

NARRATIVE: CASE EVENT DATE: 20210827
